FAERS Safety Report 6524187-X (Version None)
Quarter: 2009Q4

REPORT INFORMATION
  Report Type: 
  Country: None (occurrence: None)
  Receive Date: 20091230
  Receipt Date: 20091230
  Transmission Date: 20100525
  Serious: No
  Sender: FDA-Public Use
  Company Number: None

PATIENT
  Age: 47 Year
  Sex: Male
  Weight: 58.9676 kg

DRUGS (1)
  1. COLD REMEDY NASAL GEL [Suspect]
     Dosage: SPORADIC - 6 MONTHS LATE 2007-EARLY 2008
     Dates: start: 20070101, end: 20080101

REACTIONS (2)
  - ANOSMIA [None]
  - NASAL DISCOMFORT [None]
